FAERS Safety Report 8558053-5 (Version None)
Quarter: 2012Q3

REPORT INFORMATION
  Report Type: 
  Country: None (occurrence: None)
  Receive Date: 20120801
  Receipt Date: 20120723
  Transmission Date: 20120928
  Serious: Yes (Other)
  Sender: FDA-Public Use
  Company Number: US-ASTRAZENECA-2012SE51698

PATIENT
  Sex: Female
  Weight: 46.3 kg

DRUGS (4)
  1. NEXIUM [Suspect]
     Indication: GASTROOESOPHAGEAL REFLUX DISEASE
     Route: 048
  2. FASLODEX [Suspect]
     Route: 030
  3. TYLENOL (CAPLET) [Concomitant]
     Indication: PAIN
  4. ASPIRIN [Concomitant]

REACTIONS (11)
  - DECREASED APPETITE [None]
  - PAIN [None]
  - WEIGHT DECREASED [None]
  - DYSPHAGIA [None]
  - VOLVULUS [None]
  - ASTHENIA [None]
  - MALAISE [None]
  - OROPHARYNGEAL PAIN [None]
  - THROAT TIGHTNESS [None]
  - ARTHRITIS [None]
  - THINKING ABNORMAL [None]
